FAERS Safety Report 18995661 (Version 1)
Quarter: 2021Q1

REPORT INFORMATION
  Report Type: Spontaneous
  Country: US (occurrence: US)
  Receive Date: 20210311
  Receipt Date: 20210311
  Transmission Date: 20210420
  Serious: No
  Sender: FDA-Public Use
  Company Number: US-ALLERGAN-2026112US

PATIENT
  Age: 13 Year
  Sex: Male

DRUGS (3)
  1. VIIBRYD [Suspect]
     Active Substance: VILAZODONE HYDROCHLORIDE
     Dosage: 10 MG, QD
     Dates: start: 202006
  2. VYVANSE [Concomitant]
     Active Substance: LISDEXAMFETAMINE DIMESYLATE
     Indication: ATTENTION DEFICIT HYPERACTIVITY DISORDER
     Dosage: UNK
  3. VIIBRYD [Suspect]
     Active Substance: VILAZODONE HYDROCHLORIDE
     Indication: MAJOR DEPRESSION
     Dosage: 20 MG, QD
     Dates: start: 2020, end: 2020

REACTIONS (9)
  - Depression [Unknown]
  - Headache [Recovering/Resolving]
  - Abdominal pain [Recovering/Resolving]
  - Off label use [Unknown]
  - Wrong technique in product usage process [Unknown]
  - Hyperhidrosis [Unknown]
  - Somnolence [Unknown]
  - Irritability [Unknown]
  - Insomnia [Unknown]

NARRATIVE: CASE EVENT DATE: 202006
